FAERS Safety Report 5022575-4 (Version None)
Quarter: 2006Q2

REPORT INFORMATION
  Report Type: 
  Country: None (occurrence: None)
  Receive Date: 20060605
  Receipt Date: 20060517
  Transmission Date: 20061013
  Serious: Yes (Other)
  Sender: FDA-Public Use
  Company Number: ZA200605003890

PATIENT
  Age: 62 Year
  Sex: Male

DRUGS (5)
  1. CYMBALTA [Suspect]
     Indication: MAJOR DEPRESSION
     Dosage: 60 MG, DAILY (1/D), ORAL
     Route: 048
     Dates: start: 20051101
  2. ATACAND /SWE/ (CANDESARTAN CILEXETIL) [Concomitant]
  3. NEO-MERCAZOLE /AUS/ (CARBIMAZOLE) [Concomitant]
  4. BISOPROLOL FUMARATE [Concomitant]
  5. PRAVA /SOA/ (PRAVASTATIN SODIUM) [Concomitant]

REACTIONS (1)
  - BLOOD PRESSURE INCREASED [None]
